FAERS Safety Report 13982520 (Version 1)
Quarter: 2017Q3

REPORT INFORMATION
  Report Type: Spontaneous
  Country: US (occurrence: None)
  Receive Date: 20170918
  Receipt Date: 20170918
  Transmission Date: 20171128
  Serious: Yes (Other)
  Sender: FDA-Public Use
  Company Number: None

PATIENT
  Age: 56 Year
  Sex: Female
  Weight: 71.1 kg

DRUGS (2)
  1. CARBOPLATIN 600MG [Suspect]
     Active Substance: CARBOPLATIN
     Indication: OVARIAN CANCER
     Dosage: DOSE - 6MG, 61MG, 611MG?FREQUENCY - Q3-4 WEEKS
     Route: 042
     Dates: start: 20170519, end: 20170825
  2. DOXIL [Suspect]
     Active Substance: DOXORUBICIN HYDROCHLORIDE
     Indication: OVARIAN CANCER
     Dosage: FREQUENCY - Q 4 WEEKS
     Route: 042
     Dates: start: 20170519, end: 20170825

REACTIONS (4)
  - Pruritus [None]
  - Burning sensation [None]
  - Infusion related reaction [None]
  - Skin discolouration [None]

NARRATIVE: CASE EVENT DATE: 20170825
